FAERS Safety Report 4915868-X (Version None)
Quarter: 2006Q1

REPORT INFORMATION
  Report Type: 
  Country: None (occurrence: None)
  Receive Date: 20060214
  Receipt Date: 20060130
  Transmission Date: 20060701
  Serious: Yes (Death)
  Sender: FDA-Public Use
  Company Number: 2086

PATIENT
  Age: 45 Year
  Sex: Female

DRUGS (13)
  1. AVINZA [Suspect]
     Indication: MULTIPLE FRACTURES
  2. AVINZA [Suspect]
     Indication: OSTEOARTHRITIS
  3. AVINZA [Suspect]
     Indication: PAIN
  4. AVINZA [Suspect]
     Indication: SCOLIOSIS
  5. BUPROPION HCL [Concomitant]
  6. CLORAZEPATE DIPOTASSIUM [Concomitant]
  7. FLUOXETINE HCL [Concomitant]
  8. FUROSEMIDE [Concomitant]
  9. GABAPENTIN [Concomitant]
  10. LOVASTATIN [Concomitant]
  11. NABUMETONE [Concomitant]
  12. PROPRANOLOL HYDROCHLORIDE [Concomitant]
  13. TIZANIDINE HCL [Concomitant]

REACTIONS (3)
  - CONFUSIONAL STATE [None]
  - INTENTIONAL OVERDOSE [None]
  - SUICIDAL IDEATION [None]
